FAERS Safety Report 6168817-3 (Version None)
Quarter: 2009Q2

REPORT INFORMATION
  Report Type: 
  Country: None (occurrence: None)
  Receive Date: 20090423
  Receipt Date: 20090414
  Transmission Date: 20091009
  Serious: Yes (Hospitalization)
  Sender: FDA-Public Use
  Company Number: 2009002762

PATIENT
  Age: 55 Year
  Sex: Male

DRUGS (7)
  1. TRISENOX [Suspect]
     Indication: ACUTE PROMYELOCYTIC LEUKAEMIA
     Dosage: 7 MG (7 MG, 1 IN 1 D), INTRAVENOUS DRIP
     Route: 041
     Dates: start: 20090304, end: 20090317
  2. SODIUM RABEPRAZOLE (RABEPRAZOLE SODIUM) [Concomitant]
  3. ETHAMBUTOL HYDROCHLORIDE (ETHAMBUTOL DIHYDROCHLORIDE) [Concomitant]
  4. ISONIAZID [Concomitant]
  5. RIFAMPICIN (RIFAMPICIN SODIUM) [Concomitant]
  6. PYRAZINAMIDE [Concomitant]
  7. PYRIDOXAL PHOSPHATE (PYRIDOXAL PHOSPHATE) [Concomitant]

REACTIONS (2)
  - ORGANISING PNEUMONIA [None]
  - RESPIRATORY FAILURE [None]
